FAERS Safety Report 6895890-7 (Version None)
Quarter: 2010Q3

REPORT INFORMATION
  Report Type: 
  Country: None (occurrence: None)
  Receive Date: 20100802
  Receipt Date: 20100723
  Transmission Date: 20110219
  Serious: Yes (Hospitalization, Disabling)
  Sender: FDA-Public Use
  Company Number: FR-ABBOTT-10P-056-0660110-01

PATIENT
  Sex: Male
  Weight: 71 kg

DRUGS (7)
  1. KALETRA [Suspect]
     Indication: HIV INFECTION
     Route: 048
     Dates: start: 20091112, end: 20100506
  2. KALETRA [Suspect]
     Dates: start: 20100601
  3. CRESTOR [Concomitant]
     Indication: DYSLIPIDAEMIA
     Route: 048
     Dates: start: 20061213
  4. COAPROVEL [Concomitant]
     Indication: HYPERTENSION
     Route: 048
     Dates: start: 20040101
  5. PREVISCAN [Concomitant]
     Indication: EMBOLISM ARTERIAL
     Route: 048
     Dates: start: 20100510
  6. OMEPRAZOLE [Concomitant]
     Indication: OESOPHAGITIS HAEMORRHAGIC
     Route: 048
     Dates: start: 20040109
  7. LEXOMIL [Concomitant]
     Indication: INSOMNIA
     Route: 048
     Dates: start: 20091130

REACTIONS (6)
  - AGGRESSION [None]
  - CONFUSIONAL STATE [None]
  - DISORIENTATION [None]
  - GRAND MAL CONVULSION [None]
  - LOSS OF CONSCIOUSNESS [None]
  - SLEEP PHASE RHYTHM DISTURBANCE [None]
